FAERS Safety Report 15280533 (Version 1)
Quarter: 2018Q3

REPORT INFORMATION
  Report Type: Report from Study
  Country: JP (occurrence: JP)
  Receive Date: 20180815
  Receipt Date: 20180815
  Transmission Date: 20181010
  Serious: Yes (Hospitalization)
  Sender: FDA-Public Use
  Company Number: JP-TEVA-2018-JP-942308

PATIENT
  Age: 58 Year
  Sex: Female

DRUGS (7)
  1. CYCLOPHOSPHAMIDE. [Concomitant]
     Active Substance: CYCLOPHOSPHAMIDE
     Indication: DERMATOMYOSITIS
     Dosage: 13 TREATMENTS
     Route: 042
  2. CYCLOPHOSPHAMIDE. [Concomitant]
     Active Substance: CYCLOPHOSPHAMIDE
     Indication: INTERSTITIAL LUNG DISEASE
  3. CYCLOSPORINE A [Concomitant]
     Active Substance: CYCLOSPORINE
     Indication: INTERSTITIAL LUNG DISEASE
  4. CYCLOSPORINE A [Concomitant]
     Active Substance: CYCLOSPORINE
     Indication: DERMATOMYOSITIS
     Route: 065
  5. PREDNISOLONE. [Suspect]
     Active Substance: PREDNISOLONE
     Indication: DERMATOMYOSITIS
     Dosage: 1 MG/KG DAILY; STARTED TREATMENT WITH 1 MG/KG/DAY ON DAY 10 OF HOSPITALIZATION AND REDUCED FROM DAY
     Route: 065
  6. PREDNISOLONE. [Suspect]
     Active Substance: PREDNISOLONE
     Indication: INTERSTITIAL LUNG DISEASE
     Dosage: 1 MG/KG DAILY; PREDNISOLONE WAS RESTARTED AT 1 MG/KG/DAY FROM DAY 734.
     Route: 065
  7. PREDNISOLONE. [Suspect]
     Active Substance: PREDNISOLONE
     Dosage: .6 MG/KG DAILY; THE DOSE OF PREDNISOLONE WAS REDUCED FROM DAY?1527
     Route: 065

REACTIONS (1)
  - Alveolar proteinosis [Recovering/Resolving]
